FAERS Safety Report 12988985 (Version 3)
Quarter: 2016Q4

REPORT INFORMATION
  Report Type: Spontaneous
  Country: JP (occurrence: JP)
  Receive Date: 20161201
  Receipt Date: 20161216
  Transmission Date: 20170207
  Serious: Yes (Other)
  Sender: FDA-Public Use
  Company Number: JP-ROCHE-1860983

PATIENT

DRUGS (1)
  1. LUCENTIS [Suspect]
     Active Substance: RANIBIZUMAB
     Indication: NEOVASCULAR AGE-RELATED MACULAR DEGENERATION
     Dosage: UNK
     Route: 031

REACTIONS (8)
  - Cerebral infarction [Unknown]
  - Myocardial infarction [Unknown]
  - Retinal pigment epithelial tear [Unknown]
  - Cataract [Unknown]
  - Macular hole [Unknown]
  - Retinal haemorrhage [Unknown]
  - Ocular hypertension [Unknown]
  - Vitreous haemorrhage [Unknown]
